FAERS Safety Report 25836080 (Version 1)
Quarter: 2025Q3

REPORT INFORMATION
  Report Type: Spontaneous
  Country: US (occurrence: US)
  Receive Date: 20250923
  Receipt Date: 20250923
  Transmission Date: 20251021
  Serious: Yes (Other)
  Sender: MYLAN
  Company Number: US-MYLANLABS-2025M1080255

PATIENT
  Age: 71 Year
  Sex: Male

DRUGS (11)
  1. CITALOPRAM [Suspect]
     Active Substance: CITALOPRAM
     Indication: Dementia Alzheimer^s type
  2. CITALOPRAM [Suspect]
     Active Substance: CITALOPRAM
     Indication: Dementia
     Dosage: DOSE INCREASED
  3. ARIPIPRAZOLE [Suspect]
     Active Substance: ARIPIPRAZOLE
     Indication: Dementia Alzheimer^s type
  4. ARIPIPRAZOLE [Suspect]
     Active Substance: ARIPIPRAZOLE
     Indication: Dementia
  5. BREXPIPRAZOLE [Suspect]
     Active Substance: BREXPIPRAZOLE
     Indication: Dementia Alzheimer^s type
  6. BREXPIPRAZOLE [Suspect]
     Active Substance: BREXPIPRAZOLE
     Indication: Dementia
  7. BREXPIPRAZOLE [Suspect]
     Active Substance: BREXPIPRAZOLE
     Dosage: 2 MILLIGRAM, HS (RECEIVED INCREASED DOSE DURING BEDTIME)
  8. MEMANTINE [Suspect]
     Active Substance: MEMANTINE
     Indication: Dementia Alzheimer^s type
  9. MEMANTINE [Suspect]
     Active Substance: MEMANTINE
     Indication: Dementia
  10. DONEPEZIL [Suspect]
     Active Substance: DONEPEZIL
     Indication: Dementia Alzheimer^s type
  11. DONEPEZIL [Suspect]
     Active Substance: DONEPEZIL
     Indication: Dementia

REACTIONS (3)
  - Electrocardiogram QT prolonged [Unknown]
  - Drug ineffective for unapproved indication [Unknown]
  - Off label use [Unknown]
